FAERS Safety Report 20207102 (Version 1)
Quarter: 2021Q4

REPORT INFORMATION
  Report Type: Spontaneous
  Country: US (occurrence: US)
  Receive Date: 20211220
  Receipt Date: 20211220
  Transmission Date: 20220303
  Serious: Yes (Life-Threatening, Other)
  Sender: FDA-Public Use
  Company Number: US-MYLANLABS-2021M1093518

PATIENT
  Age: 46 Year
  Sex: Female
  Weight: 77.11 kg

DRUGS (6)
  1. GLATIRAMER ACETATE [Suspect]
     Active Substance: GLATIRAMER ACETATE
     Indication: Multiple sclerosis
     Dosage: 40 MILLIGRAM, BIWEEKLY
     Route: 058
     Dates: start: 202107, end: 20211212
  2. GABAPENTIN [Concomitant]
     Active Substance: GABAPENTIN
     Indication: Inflammation
     Dosage: 300 MILLIGRAM, TID
     Dates: start: 202107, end: 20211210
  3. GABAPENTIN [Concomitant]
     Active Substance: GABAPENTIN
     Indication: Seizure prophylaxis
  4. LEVOTHYROXINE [Concomitant]
     Active Substance: LEVOTHYROXINE
     Indication: Hypothyroidism
     Dosage: 25 MICROGRAM, QD
     Dates: end: 20211210
  5. OMEPRAZOLE [Concomitant]
     Active Substance: OMEPRAZOLE
     Indication: Gastrooesophageal reflux disease
     Dosage: 400 MILLIGRAM, QD
  6. MELOXICAM [Concomitant]
     Active Substance: MELOXICAM
     Indication: Inflammation
     Dosage: 15 MILLIGRAM, QD
     Dates: end: 20211210

REACTIONS (5)
  - Anaphylactic reaction [Recovered/Resolved]
  - Erythema [Not Recovered/Not Resolved]
  - Swelling [Not Recovered/Not Resolved]
  - Nausea [Not Recovered/Not Resolved]
  - Dyspnoea [Recovered/Resolved]

NARRATIVE: CASE EVENT DATE: 20211210
